FAERS Safety Report 17150275 (Version 1)
Quarter: 2019Q4

REPORT INFORMATION
  Report Type: Spontaneous
  Country: ES (occurrence: ES)
  Receive Date: 20191213
  Receipt Date: 20191213
  Transmission Date: 20200122
  Serious: Yes (Other)
  Sender: FDA-Public Use
  Company Number: ES-009507513-1912ESP004273

PATIENT
  Age: 7 Decade
  Sex: Female

DRUGS (1)
  1. INVANZ [Suspect]
     Active Substance: ERTAPENEM SODIUM
     Dosage: 1 GRAM, Q8H, POWDER FOR CONCENTRATE FOR SOLUTION FOR INFUSION, 1 VIAL
     Route: 042
     Dates: start: 20180512, end: 20180515

REACTIONS (2)
  - Seizure [Recovered/Resolved]
  - Medication error [Recovered/Resolved]

NARRATIVE: CASE EVENT DATE: 20180515
